FAERS Safety Report 7286839-6 (Version None)
Quarter: 2011Q1

REPORT INFORMATION
  Report Type: 
  Country: None (occurrence: None)
  Receive Date: 20110210
  Receipt Date: 20110208
  Transmission Date: 20110831
  Serious: Yes (Hospitalization)
  Sender: FDA-Public Use
  Company Number: TW-BRISTOL-MYERS SQUIBB COMPANY-15354558

PATIENT
  Age: 56 Year
  Sex: Male
  Weight: 39 kg

DRUGS (1)
  1. CETUXIMAB [Suspect]
     Indication: HEAD AND NECK CANCER
     Dosage: RECENT INF: 05-OCT-2010
     Route: 042
     Dates: start: 20100331

REACTIONS (3)
  - MUCOSAL INFLAMMATION [None]
  - MOUTH HAEMORRHAGE [None]
  - DECREASED APPETITE [None]
